FAERS Safety Report 5238427-0 (Version None)
Quarter: 2007Q1

REPORT INFORMATION
  Report Type: 
  Country: None (occurrence: None)
  Receive Date: 20070215
  Receipt Date: 20070208
  Transmission Date: 20070707
  Serious: Yes (Hospitalization)
  Sender: FDA-Public Use
  Company Number: 2007UW02653

PATIENT
  Age: 77 Year
  Sex: Female
  Weight: 131.5 kg

DRUGS (7)
  1. SEROQUEL [Suspect]
     Indication: VASCULAR DEMENTIA
     Route: 048
  2. CARDIZEM [Concomitant]
  3. LOPRESSOR [Concomitant]
  4. LASIX [Concomitant]
  5. ARICEPT [Concomitant]
  6. SYNTHROID [Concomitant]
  7. ASPIRIN [Concomitant]

REACTIONS (6)
  - BLOOD PRESSURE INCREASED [None]
  - CONVERSION DISORDER [None]
  - FEELING ABNORMAL [None]
  - HALLUCINATION [None]
  - ILL-DEFINED DISORDER [None]
  - PARANOIA [None]
